FAERS Safety Report 8826595 (Version 1)
Quarter: 2012Q4

REPORT INFORMATION
  Report Type: 
  Country: GB (occurrence: GB)
  Receive Date: 20121005
  Receipt Date: 20121005
  Transmission Date: 20130627
  Serious: Yes (Other)
  Sender: FDA-Public Use
  Company Number: PHHY2012GB085109

PATIENT
  Age: 66 Year
  Sex: Male

DRUGS (3)
  1. SIMVASTATIN [Suspect]
     Indication: BLOOD CHOLESTEROL INCREASED
     Dosage: 40 mg, QD
     Route: 048
  2. FLUTICASONE [Concomitant]
     Dosage: 2 DF, QD
     Route: 045
     Dates: start: 2010
  3. ASASANTIN RETARD [Concomitant]
     Dosage: 1 DF, BID
     Route: 048
     Dates: start: 2010

REACTIONS (2)
  - Memory impairment [Not Recovered/Not Resolved]
  - Irritability [Unknown]
